FAERS Safety Report 8935253 (Version 1)
Quarter: 2012Q4

REPORT INFORMATION
  Report Type: 
  Country: US (occurrence: US)
  Receive Date: 20121129
  Receipt Date: 20121129
  Transmission Date: 20130627
  Serious: Yes (Hospitalization)
  Sender: FDA-Public Use
  Company Number: US-ARROW-2012-20000

PATIENT
  Sex: Female
  Weight: 59 kg

DRUGS (2)
  1. FENTANYL [Suspect]
     Indication: FIBROMYALGIA
     Dosage: 1 patch, q72h
     Route: 062
     Dates: start: 201210
  2. DULCOLAX                           /00064401/ [Concomitant]
     Indication: CONSTIPATION
     Dosage: UNK, unknown
     Route: 048

REACTIONS (5)
  - Blood pressure decreased [Unknown]
  - Dehydration [Recovered/Resolved]
  - Abdominal pain [Unknown]
  - Enzyme abnormality [Unknown]
  - Pancreatitis [Recovered/Resolved]
